FAERS Safety Report 24542508 (Version 2)
Quarter: 2024Q4

REPORT INFORMATION
  Report Type: Spontaneous
  Country: MY (occurrence: MY)
  Receive Date: 20241024
  Receipt Date: 20241105
  Transmission Date: 20250115
  Serious: Yes (Hospitalization, Other)
  Sender: ROCHE
  Company Number: MY-002147023-NVSC2024MY199561

PATIENT
  Age: 55 Year
  Sex: Male

DRUGS (6)
  1. XOLAIR [Suspect]
     Active Substance: OMALIZUMAB
     Indication: Chronic spontaneous urticaria
     Dosage: 300 MG (EVERY 5-6 WEEKS)
     Route: 050
     Dates: start: 20240129
  2. XOLAIR [Suspect]
     Active Substance: OMALIZUMAB
     Dosage: 300 MG (EVERY 5-6 WEEKS)
     Route: 050
     Dates: start: 20240226
  3. XOLAIR [Suspect]
     Active Substance: OMALIZUMAB
     Dosage: 300 MG (EVERY 5-6 WEEKS)
     Route: 050
     Dates: start: 20240328
  4. XOLAIR [Suspect]
     Active Substance: OMALIZUMAB
     Dosage: 300 MG (EVERY 5-6 WEEKS)
     Route: 050
     Dates: start: 20240503
  5. XOLAIR [Suspect]
     Active Substance: OMALIZUMAB
     Dosage: 300 MG (EVERY 5-6 WEEKS)
     Route: 050
     Dates: start: 20240619, end: 20240619
  6. BILASTINE [Concomitant]
     Active Substance: BILASTINE
     Indication: Product used for unknown indication
     Dosage: 40 MG, BID
     Route: 065

REACTIONS (6)
  - Haemoglobin decreased [Recovered/Resolved]
  - Vasculitis [Recovered/Resolved]
  - Hypotension [Recovered/Resolved]
  - Syncope [Recovered/Resolved]
  - Gastric haemorrhage [Recovered/Resolved]
  - Rectal haemorrhage [Recovered/Resolved]

NARRATIVE: CASE EVENT DATE: 20240701
